FAERS Safety Report 4899867-2 (Version None)
Quarter: 2006Q1

REPORT INFORMATION
  Report Type: 
  Country: None (occurrence: None)
  Receive Date: 20060118
  Receipt Date: 20050725
  Transmission Date: 20060701
  Serious: No
  Sender: FDA-Public Use
  Company Number: 2005001435

PATIENT
  Sex: Female

DRUGS (4)
  1. TARCEVA [Suspect]
     Indication: NON-SMALL CELL LUNG CANCER
     Dosage: 150MG (QD), ORAL
     Route: 048
  2. LOVASTATIN [Concomitant]
  3. METOPROLOL [Concomitant]
  4. FOLIC ACID [Concomitant]

REACTIONS (4)
  - DIARRHOEA [None]
  - HYPOTRICHOSIS [None]
  - ONYCHOCLASIS [None]
  - RASH PRURITIC [None]
